FAERS Safety Report 5374004-9 (Version None)
Quarter: 2007Q2

REPORT INFORMATION
  Report Type: 
  Country: None (occurrence: None)
  Receive Date: 20070628
  Receipt Date: 20070618
  Transmission Date: 20071010
  Serious: Yes (Hospitalization)
  Sender: FDA-Public Use
  Company Number: JP-MERCK-0705USA03355

PATIENT
  Age: 51 Year
  Sex: Male
  Weight: 32 kg

DRUGS (1)
  1. PROPECIA [Suspect]
     Indication: MALE PATTERN BALDNESS
     Route: 048
     Dates: start: 20060801, end: 20070403

REACTIONS (2)
  - HEPATIC FUNCTION ABNORMAL [None]
  - UPPER RESPIRATORY TRACT INFLAMMATION [None]
